FAERS Safety Report 24641879 (Version 2)
Quarter: 2024Q4

REPORT INFORMATION
  Report Type: Report from Study
  Country: US (occurrence: US)
  Receive Date: 20241120
  Receipt Date: 20241218
  Transmission Date: 20250115
  Serious: Yes (Death)
  Sender: ABBVIE
  Company Number: US-ABBVIE-6011959

PATIENT
  Sex: Female

DRUGS (1)
  1. SYNTHROID [Suspect]
     Active Substance: LEVOTHYROXINE SODIUM
     Indication: Product used for unknown indication
     Dosage: FORM STRENGTH: 100 MICROGRAM, 1 TABLET MON. TO SAT. ONLY
     Route: 048
     Dates: start: 201903

REACTIONS (1)
  - Liver disorder [Fatal]
